FAERS Safety Report 9645991 (Version 2)
Quarter: 2013Q4

REPORT INFORMATION
  Report Type: Spontaneous
  Country: US (occurrence: US)
  Receive Date: 20131025
  Receipt Date: 20131107
  Transmission Date: 20140711
  Serious: Yes (Other)
  Sender: FDA-Public Use
  Company Number: US-GILEAD-2013-0086001

PATIENT
  Sex: Female

DRUGS (3)
  1. STRIBILD [Suspect]
     Indication: HIV INFECTION
     Dosage: UNK
     Dates: start: 20130503
  2. COMBIVIR [Concomitant]
  3. KALETRA [Concomitant]

REACTIONS (1)
  - Liver function test abnormal [Unknown]
